FAERS Safety Report 16943950 (Version 1)
Quarter: 2019Q4

REPORT INFORMATION
  Report Type: Spontaneous
  Country: IT (occurrence: IT)
  Receive Date: 20191022
  Receipt Date: 20191022
  Transmission Date: 20200122
  Serious: Yes (Other)
  Sender: FDA-Public Use
  Company Number: IT-SUN PHARMACEUTICAL INDUSTRIES LTD-2019RR-224464

PATIENT
  Age: 38 Year
  Sex: Male

DRUGS (1)
  1. SUMATRIPTAN SUN 6 MG/0,5 ML SOLUZIONE INIETTABILE [Suspect]
     Active Substance: SUMATRIPTAN SUCCINATE
     Indication: CLUSTER HEADACHE
     Dosage: UNK
     Route: 065
     Dates: start: 20190902, end: 20190910

REACTIONS (4)
  - Visual impairment [Unknown]
  - Vomiting [Unknown]
  - Vertigo [Unknown]
  - Skin hyperpigmentation [Unknown]

NARRATIVE: CASE EVENT DATE: 20190910
